FAERS Safety Report 5638997-4 (Version None)
Quarter: 2008Q1

REPORT INFORMATION
  Report Type: 
  Country: None (occurrence: None)
  Receive Date: 20080225
  Receipt Date: 20080225
  Transmission Date: 20080703
  Serious: No
  Sender: FDA-Public Use
  Company Number: None

PATIENT
  Sex: Male
  Weight: 86.5 kg

DRUGS (1)
  1. CISPLATIN [Suspect]
     Dosage: 197 MG
     Dates: end: 20071231

REACTIONS (2)
  - PNEUMONIA [None]
  - WEIGHT DECREASED [None]
